FAERS Safety Report 6842400-6 (Version None)
Quarter: 2010Q3

REPORT INFORMATION
  Report Type: 
  Country: None (occurrence: None)
  Receive Date: 20100714
  Receipt Date: 20070729
  Transmission Date: 20110219
  Serious: No
  Sender: FDA-Public Use
  Company Number: US-PFIZER INC-2007063196

PATIENT
  Sex: Female
  Weight: 59 kg

DRUGS (9)
  1. CHANTIX [Suspect]
     Indication: SMOKING CESSATION THERAPY
     Dates: start: 20070728
  2. LAMICTAL [Concomitant]
  3. LEXAPRO [Concomitant]
  4. NEURONTIN [Concomitant]
  5. LEVBID [Concomitant]
  6. TOPAMAX [Concomitant]
  7. PROPRANOLOL [Concomitant]
  8. KLONOPIN [Concomitant]
  9. AMBIEN [Concomitant]

REACTIONS (2)
  - CONFUSIONAL STATE [None]
  - MEMORY IMPAIRMENT [None]
